FAERS Safety Report 18180013 (Version 5)
Quarter: 2020Q3

REPORT INFORMATION
  Report Type: Spontaneous
  Country: US (occurrence: US)
  Receive Date: 20200821
  Receipt Date: 20200925
  Transmission Date: 20201103
  Serious: No
  Sender: FDA-Public Use
  Company Number: US-UNITED THERAPEUTICS-UNT-2020-012264

PATIENT
  Age: 72 Year
  Sex: Female
  Weight: 60.32 kg

DRUGS (8)
  1. REMODULIN [Suspect]
     Active Substance: TREPROSTINIL
     Dosage: 0.087 ?G/KG, CONTINUING
     Route: 041
  2. ADCIRCA [Concomitant]
     Active Substance: TADALAFIL
     Indication: PULMONARY ARTERIAL HYPERTENSION
     Dosage: UNK
     Route: 065
  3. REMODULIN [Suspect]
     Active Substance: TREPROSTINIL
     Dosage: 0.085 ?G/KG, CONTINUING
     Route: 041
  4. LETAIRIS [Concomitant]
     Active Substance: AMBRISENTAN
     Indication: PRODUCT USED FOR UNKNOWN INDICATION
     Dosage: UNK
     Route: 065
  5. REMODULIN [Suspect]
     Active Substance: TREPROSTINIL
     Dosage: 0.083 ?G/KG, CONTINUING
     Route: 041
  6. REMODULIN [Suspect]
     Active Substance: TREPROSTINIL
     Indication: PULMONARY ARTERIAL HYPERTENSION
     Dosage: UNK, CONTINUING
     Route: 041
     Dates: start: 20191007
  7. REMODULIN [Suspect]
     Active Substance: TREPROSTINIL
     Dosage: UNK, CONTINUING (AT A RATE OF 37)
     Route: 041
  8. REMODULIN [Suspect]
     Active Substance: TREPROSTINIL
     Dosage: 0.037 ?G/KG, CONTINUING
     Route: 041

REACTIONS (15)
  - Hot flush [Unknown]
  - Skin discolouration [Unknown]
  - Ear discomfort [Unknown]
  - Cough [Unknown]
  - Pericardial effusion [Unknown]
  - Ear pain [Recovered/Resolved]
  - Device leakage [Unknown]
  - Headache [Unknown]
  - Diarrhoea [Unknown]
  - Erythema [Unknown]
  - Feeling abnormal [Unknown]
  - Nausea [Unknown]
  - Pain in jaw [Unknown]
  - Tanning [Unknown]
  - Secretion discharge [Unknown]

NARRATIVE: CASE EVENT DATE: 20200816
